FAERS Safety Report 15030702 (Version 1)
Quarter: 2018Q2

REPORT INFORMATION
  Report Type: Spontaneous
  Country: GB (occurrence: GB)
  Receive Date: 20180619
  Receipt Date: 20180619
  Transmission Date: 20180711
  Serious: Yes (Other)
  Sender: FDA-Public Use
  Company Number: GB-MYLANLABS-2018M1040263

PATIENT
  Age: 7 Month
  Sex: Female

DRUGS (4)
  1. ACETYLSALICYLIC ACID [Suspect]
     Active Substance: ASPIRIN
     Indication: PRODUCT USED FOR UNKNOWN INDICATION
     Dosage: UNK
     Route: 065
  2. METHYLPREDNISOLONE. [Suspect]
     Active Substance: METHYLPREDNISOLONE
     Indication: PRODUCT USED FOR UNKNOWN INDICATION
     Dosage: 3 DF, UNK, 30 MG/KG/WT
     Route: 042
  3. PREDNISOLONE. [Suspect]
     Active Substance: PREDNISOLONE
     Indication: PRODUCT USED FOR UNKNOWN INDICATION
     Dosage: UNK, TAPERING DOSE
     Route: 048
  4. TINZAPARIN [Suspect]
     Active Substance: TINZAPARIN
     Indication: PRODUCT USED FOR UNKNOWN INDICATION
     Dosage: UNK
     Route: 065

REACTIONS (4)
  - Embolism [Unknown]
  - Cerebrovascular accident [Unknown]
  - Basilar artery occlusion [Unknown]
  - Infarction [Unknown]
